FAERS Safety Report 5981631-4 (Version None)
Quarter: 2008Q4

REPORT INFORMATION
  Report Type: 
  Country: None (occurrence: None)
  Receive Date: 20081205
  Receipt Date: 20081129
  Transmission Date: 20090506
  Serious: Yes (Death, Hospitalization)
  Sender: FDA-Public Use
  Company Number: SA-JNJFOC-20081200612

PATIENT
  Age: 6 Year
  Sex: Female

DRUGS (1)
  1. TOPAMAX [Suspect]
     Indication: CONVULSION
     Route: 048

REACTIONS (2)
  - BONE MARROW FAILURE [None]
  - HAEMORRHAGE [None]
